FAERS Safety Report 7216569-8 (Version None)
Quarter: 2011Q1

REPORT INFORMATION
  Report Type: 
  Country: None (occurrence: None)
  Receive Date: 20110110
  Receipt Date: 20101229
  Transmission Date: 20110831
  Serious: Yes (Hospitalization)
  Sender: FDA-Public Use
  Company Number: US-BIOGENIDEC-2010BI041327

PATIENT
  Age: 64 Year
  Sex: Female

DRUGS (2)
  1. CYMBALTA [Concomitant]
     Indication: FIBROMYALGIA
  2. TYSABRI [Suspect]
     Indication: MULTIPLE SCLEROSIS
     Route: 042
     Dates: start: 20080514

REACTIONS (15)
  - ANAEMIA [None]
  - MULTIPLE SCLEROSIS [None]
  - COMPRESSION FRACTURE [None]
  - TYPE 2 DIABETES MELLITUS [None]
  - ABASIA [None]
  - PAIN [None]
  - FALL [None]
  - BRONCHITIS [None]
  - COUGH [None]
  - URINARY TRACT INFECTION [None]
  - DEHYDRATION [None]
  - UPPER RESPIRATORY TRACT CONGESTION [None]
  - SEPSIS [None]
  - PNEUMONIA [None]
  - FIBROMYALGIA [None]
